FAERS Safety Report 4712721-1 (Version None)
Quarter: 2005Q3

REPORT INFORMATION
  Report Type: 
  Country: None (occurrence: None)
  Receive Date: 20050701
  Receipt Date: 20050425
  Transmission Date: 20060218
  Serious: Yes (Hospitalization)
  Sender: FDA-Public Use
  Company Number: 2005065994

PATIENT
  Age: 21 Year
  Sex: Female

DRUGS (4)
  1. ZOLOFT [Suspect]
     Indication: ANXIETY
     Dosage: (50 MG), ORAL
     Route: 048
     Dates: start: 20040901, end: 20050425
  2. ZOLOFT [Suspect]
     Indication: DEPRESSION
     Dosage: (50 MG), ORAL
     Route: 048
     Dates: start: 20040901, end: 20050425
  3. ZOLOFT [Suspect]
     Indication: SLEEP DISORDER
     Dosage: (50 MG), ORAL
     Route: 048
     Dates: start: 20040901, end: 20050425
  4. CILEST (ETHINYLESTRADIOL, NORGESTIMATE) [Concomitant]

REACTIONS (3)
  - ANXIETY [None]
  - INSOMNIA [None]
  - TREMOR [None]
